FAERS Safety Report 18768538 (Version 1)
Quarter: 2021Q1

REPORT INFORMATION
  Report Type: Spontaneous
  Country: US (occurrence: US)
  Receive Date: 20210121
  Receipt Date: 20210121
  Transmission Date: 20210419
  Serious: Yes (Other)
  Sender: FDA-Public Use
  Company Number: None

PATIENT
  Age: 22 Year
  Sex: Male
  Weight: 54 kg

DRUGS (15)
  1. ZONISAMIDE. [Suspect]
     Active Substance: ZONISAMIDE
     Indication: SEIZURE
     Dosage: ?          OTHER ROUTE:G?TUBE?
     Dates: start: 20200204
  2. ACETAMINOPHEN. [Concomitant]
     Active Substance: ACETAMINOPHEN
  3. CLOBAZAM. [Concomitant]
     Active Substance: CLOBAZAM
  4. MULTIVITAMIN [Concomitant]
     Active Substance: VITAMINS
  5. POLYETHYLENE GLYCOL [Concomitant]
     Active Substance: POLYETHYLENE GLYCOLS
  6. VITAMIN D [Concomitant]
     Active Substance: VITAMIN D NOS
  7. LEVETIRACETAM. [Concomitant]
     Active Substance: LEVETIRACETAM
  8. VIMPAT [Concomitant]
     Active Substance: LACOSAMIDE
  9. ENOXAPARIN [Concomitant]
     Active Substance: ENOXAPARIN
  10. CLONAZEPAM. [Concomitant]
     Active Substance: CLONAZEPAM
  11. SENNA [Concomitant]
     Active Substance: SENNA LEAF\SENNOSIDES\SENNOSIDES A AND B
  12. TRIHEXYPHENIDYL [Concomitant]
     Active Substance: TRIHEXYPHENIDYL
  13. ALBUTEROL. [Concomitant]
     Active Substance: ALBUTEROL
  14. MIDAZOLAM. [Concomitant]
     Active Substance: MIDAZOLAM
  15. BACLOFEN. [Concomitant]
     Active Substance: BACLOFEN

REACTIONS (3)
  - Cough [None]
  - Anaphylactic reaction [None]
  - Drug hypersensitivity [None]
